FAERS Safety Report 12393395 (Version 1)
Quarter: 2016Q2

REPORT INFORMATION
  Report Type: Spontaneous
  Country: US (occurrence: None)
  Receive Date: 20160520
  Receipt Date: 20160520
  Transmission Date: 20160815
  Serious: No
  Sender: FDA-Public Use
  Company Number: None

PATIENT
  Sex: Female

DRUGS (1)
  1. GENERIC WELLBUTRIN [Suspect]
     Active Substance: BUPROPION HYDROCHLORIDE

REACTIONS (3)
  - Gallbladder pain [None]
  - Drug ineffective [None]
  - Impaired gastric emptying [None]
